FAERS Safety Report 5815237-4 (Version None)
Quarter: 2008Q3

REPORT INFORMATION
  Report Type: 
  Country: None (occurrence: None)
  Receive Date: 20080718
  Receipt Date: 20080711
  Transmission Date: 20090109
  Serious: Yes (Hospitalization)
  Sender: FDA-Public Use
  Company Number: US-BOEHRINGER INGELHEIM GMBH, GERMANY-2008-BP-10828RO

PATIENT
  Age: 38 Year
  Sex: Female

DRUGS (24)
  1. PREDNISONE TAB [Suspect]
     Indication: SYSTEMIC LUPUS ERYTHEMATOSUS
     Route: 048
  2. AZATHIOPRINE [Suspect]
     Indication: SYSTEMIC LUPUS ERYTHEMATOSUS
     Route: 048
  3. HYDROXYCHLOROQUINE SULFATE [Suspect]
     Indication: SYSTEMIC LUPUS ERYTHEMATOSUS
     Route: 048
  4. CELECOXIB [Suspect]
  5. CIPROFLOXACIN [Concomitant]
     Indication: KLEBSIELLA INFECTION
  6. CIPROFLOXACIN [Concomitant]
     Indication: ENTEROCOCCAL INFECTION
  7. CIPROFLOXACIN [Concomitant]
     Indication: ESCHERICHIA INFECTION
  8. ALBENDAZOLE [Concomitant]
     Indication: STRONGYLOIDIASIS
     Route: 048
  9. FLUIDS [Concomitant]
     Indication: KLEBSIELLA INFECTION
  10. FLUIDS [Concomitant]
     Indication: ENTEROCOCCAL INFECTION
  11. FLUIDS [Concomitant]
     Indication: ESCHERICHIA INFECTION
  12. STEROIDS [Concomitant]
     Indication: KLEBSIELLA INFECTION
  13. STEROIDS [Concomitant]
     Indication: ENTEROCOCCAL INFECTION
  14. STEROIDS [Concomitant]
     Indication: ESCHERICHIA INFECTION
  15. METRONIDAZOLE HCL [Concomitant]
     Indication: KLEBSIELLA INFECTION
  16. METRONIDAZOLE HCL [Concomitant]
     Indication: ENTEROCOCCAL INFECTION
  17. METRONIDAZOLE HCL [Concomitant]
     Indication: ESCHERICHIA INFECTION
  18. VANCOMYCIN HCL [Concomitant]
     Indication: KLEBSIELLA INFECTION
  19. VANCOMYCIN HCL [Concomitant]
     Indication: ENTEROCOCCAL INFECTION
  20. VANCOMYCIN HCL [Concomitant]
     Indication: ESCHERICHIA INFECTION
  21. GENTAMICIN [Concomitant]
     Indication: KLEBSIELLA INFECTION
  22. GENTAMICIN [Concomitant]
     Indication: ENTEROCOCCAL INFECTION
  23. GENTAMICIN [Concomitant]
     Indication: ESCHERICHIA INFECTION
  24. IVERMECTIN [Concomitant]
     Indication: STRONGYLOIDIASIS

REACTIONS (10)
  - DUODENITIS [None]
  - ENTEROCOCCAL INFECTION [None]
  - ESCHERICHIA INFECTION [None]
  - HYPOTENSION [None]
  - KLEBSIELLA INFECTION [None]
  - OESOPHAGITIS [None]
  - RESPIRATORY DISTRESS [None]
  - SEPSIS [None]
  - STRONGYLOIDIASIS [None]
  - THROMBOCYTOPENIA [None]
